FAERS Safety Report 25716310 (Version 3)
Quarter: 2025Q4

REPORT INFORMATION
  Report Type: Spontaneous
  Country: CL (occurrence: CL)
  Receive Date: 20250822
  Receipt Date: 20251020
  Transmission Date: 20260117
  Serious: Yes (Hospitalization, Other)
  Sender: NOVO NORDISK
  Company Number: CL-NOVOPROD-1463407

PATIENT
  Age: 34 Year
  Sex: Female
  Weight: 69 kg

DRUGS (3)
  1. NOVORAPID [Suspect]
     Active Substance: INSULIN ASPART
     Indication: Diabetes mellitus
     Dosage: 2 (UNITS NOT REPORTED) PLUS TWO ADJUSTMENTS FOUR TO FIVE TIMES A DAY
     Dates: start: 2021
  2. NOVORAPID [Suspect]
     Active Substance: INSULIN ASPART
     Dosage: (8 IU + 6 IU)
  3. TRESIBA [Suspect]
     Active Substance: INSULIN DEGLUDEC
     Indication: Diabetes mellitus
     Dosage: 15 (UNITS NOT REPORTED)
     Dates: start: 2021

REACTIONS (4)
  - Diabetic metabolic decompensation [Unknown]
  - Pubic pain [Unknown]
  - Product leakage [Unknown]
  - Maternal exposure during pregnancy [Unknown]

NARRATIVE: CASE EVENT DATE: 20250601
